FAERS Safety Report 4591563-4 (Version None)
Quarter: 2005Q1

REPORT INFORMATION
  Report Type: 
  Country: None (occurrence: None)
  Receive Date: 20050222
  Receipt Date: 20050207
  Transmission Date: 20050727
  Serious: Yes (Other)
  Sender: FDA-Public Use
  Company Number: 2005028314

PATIENT
  Age: 83 Year
  Sex: Female
  Weight: 47.6277 kg

DRUGS (14)
  1. ZOLOFT [Suspect]
     Indication: DEPRESSION
     Dosage: 50 MCG (50 MCG, 1 IN 1 D), ORAL
     Route: 048
     Dates: start: 20040401, end: 20040712
  2. AMIODARONE HCL [Suspect]
     Indication: ATRIAL FIBRILLATION
     Dosage: ORAL
     Route: 048
     Dates: end: 20040101
  3. FUROSEMIDE [Concomitant]
  4. ATORVASTATIN (ATORVASTATIN) [Concomitant]
  5. ALLOPURINOL [Concomitant]
  6. ASPIRIN [Concomitant]
  7. ALENDRONATE SODIUM [Concomitant]
  8. GABAPENTIN [Concomitant]
  9. WARFARIN SODIUM [Concomitant]
  10. RAMIPRIL [Concomitant]
  11. DILTIAZEM HYDROCHLORIDE [Concomitant]
  12. SPIRONOLACTONE [Concomitant]
  13. SALBUTAMOL (SALBUTAMOL) [Concomitant]
  14. IPRATROPIUM BROMIDE [Concomitant]

REACTIONS (4)
  - ATRIAL FIBRILLATION [None]
  - BLOOD SODIUM DECREASED [None]
  - LUNG INFECTION PSEUDOMONAL [None]
  - PULMONARY TOXICITY [None]
